FAERS Safety Report 5247021-7 (Version None)
Quarter: 2007Q1

REPORT INFORMATION
  Report Type: 
  Country: None (occurrence: None)
  Receive Date: 20070226
  Receipt Date: 20070219
  Transmission Date: 20070707
  Serious: Yes (Other)
  Sender: FDA-Public Use
  Company Number: FR-GLAXOSMITHKLINE-B0459281A

PATIENT
  Age: 46 Year
  Sex: Female

DRUGS (3)
  1. ZOFRAN [Suspect]
     Dosage: 8MG PER DAY
     Route: 048
     Dates: start: 20070217, end: 20070217
  2. HYZAAR [Suspect]
     Dosage: 1TAB PER DAY
     Route: 048
  3. CHEMOTHERAPY [Concomitant]
     Route: 065
     Dates: end: 20070216

REACTIONS (2)
  - BLOOD PRESSURE DECREASED [None]
  - SYNCOPE [None]
